FAERS Safety Report 7463386-X (Version None)
Quarter: 2011Q2

REPORT INFORMATION
  Report Type: 
  Country: None (occurrence: None)
  Receive Date: 20110506
  Receipt Date: 20110502
  Transmission Date: 20111010
  Serious: Yes (Other)
  Sender: FDA-Public Use
  Company Number: A0918030A

PATIENT
  Age: 68 Year
  Sex: Male

DRUGS (6)
  1. SPIRIVA [Concomitant]
  2. OXYGEN [Concomitant]
  3. INSULIN [Concomitant]
  4. ADVAIR DISKUS 100/50 [Suspect]
     Indication: CHRONIC OBSTRUCTIVE PULMONARY DISEASE
     Dosage: 1PUFF TWICE PER DAY
     Route: 055
     Dates: start: 20050101
  5. ALBUTEROL [Concomitant]
  6. THEOPHYLLINE [Concomitant]

REACTIONS (4)
  - PNEUMONIA [None]
  - BACTERIAL DISEASE CARRIER [None]
  - DYSGEUSIA [None]
  - OXYGEN SUPPLEMENTATION [None]
